FAERS Safety Report 25710551 (Version 1)
Quarter: 2025Q3

REPORT INFORMATION
  Report Type: Spontaneous
  Country: US (occurrence: None)
  Receive Date: 20250820
  Receipt Date: 20250820
  Transmission Date: 20251021
  Serious: Yes (Other)
  Sender: FDA-CTU
  Company Number: None

PATIENT
  Age: 57 Year

DRUGS (1)
  1. DOTTI [Suspect]
     Active Substance: ESTRADIOL

REACTIONS (5)
  - Product formulation issue [None]
  - Dermatitis contact [None]
  - Application site pruritus [None]
  - Application site erythema [None]
  - Application site rash [None]

NARRATIVE: CASE EVENT DATE: 20241119
